FAERS Safety Report 8429154-7 (Version None)
Quarter: 2012Q2

REPORT INFORMATION
  Report Type: 
  Country: None (occurrence: None)
  Receive Date: 20120323
  Receipt Date: 20111007
  Transmission Date: 20120825
  Serious: Yes (Hospitalization)
  Sender: FDA-Public Use
  Company Number: 163-21880-11072752

PATIENT
  Age: 73 Year
  Sex: Male
  Weight: 81.1939 kg

DRUGS (15)
  1. LIPITOR [Concomitant]
  2. RENAGEL [Concomitant]
  3. FAMCICLOVIR [Concomitant]
  4. NEURONTIN [Concomitant]
  5. SOMA [Concomitant]
  6. DEXAMETHASONE [Concomitant]
  7. MULTIVITAMIN [Concomitant]
  8. ZOLOFT [Concomitant]
  9. FLOMAX [Concomitant]
  10. XANAX [Concomitant]
  11. REVLIMID [Suspect]
     Indication: MULTIPLE MYELOMA
     Dosage: 5 MG, QD, PO
     Route: 048
     Dates: start: 20100922
  12. OMEPRAZOLE [Concomitant]
  13. VICODIN [Concomitant]
  14. PHENERGAN HCL [Concomitant]
  15. VELCADE [Concomitant]

REACTIONS (1)
  - DEVICE RELATED SEPSIS [None]
